FAERS Safety Report 9353485 (Version 1)
Quarter: 2013Q2

REPORT INFORMATION
  Report Type: Spontaneous
  Country: GB (occurrence: GB)
  Receive Date: 20130618
  Receipt Date: 20130618
  Transmission Date: 20140414
  Serious: Yes (Other)
  Sender: FDA-Public Use
  Company Number: GB-SANOFI-AVENTIS-2013SA059195

PATIENT
  Sex: Male

DRUGS (3)
  1. LANTUS [Suspect]
     Indication: PRODUCT USED FOR UNKNOWN INDICATION
     Dosage: DOSE:40 UNIT(S)
     Route: 065
  2. NOVORAPID [Suspect]
     Indication: PRODUCT USED FOR UNKNOWN INDICATION
     Dosage: DOSE: 1 UNIT TO 5G OF CARBOHYDRATE
     Route: 065
  3. CORTICOSTEROID NOS [Concomitant]

REACTIONS (3)
  - Ketoacidosis [Unknown]
  - Vomiting [Unknown]
  - Blood glucose increased [Unknown]
